FAERS Safety Report 9701410 (Version 1)
Quarter: 2013Q4

REPORT INFORMATION
  Report Type: Spontaneous
  Country: US (occurrence: US)
  Receive Date: 20131121
  Receipt Date: 20131121
  Transmission Date: 20140711
  Serious: No
  Sender: FDA-Public Use
  Company Number: US-GILEAD-2008-0016894

PATIENT
  Sex: Female
  Weight: 54.43 kg

DRUGS (18)
  1. LETAIRIS [Suspect]
     Indication: PULMONARY ARTERIAL HYPERTENSION
     Route: 048
     Dates: start: 20080503
  2. REMODULIN [Concomitant]
     Dosage: CONTINUOUS
     Route: 042
  3. REVATIO [Concomitant]
     Route: 048
  4. NORVASC [Concomitant]
     Route: 048
  5. OXYGEN [Concomitant]
     Dosage: AS DIRECTED
     Route: 055
  6. HEPARIN [Concomitant]
     Dosage: AS DIRECTED
     Route: 042
  7. ALBUTEROL [Concomitant]
     Dosage: AS DIRECTED
     Route: 055
  8. SEREVENT [Concomitant]
     Dosage: AS DIRECTED
     Route: 055
  9. FLOVENT [Concomitant]
     Dosage: AS DIRECTED
     Route: 055
  10. ATROVENT [Concomitant]
     Route: 055
  11. PREDNISONE [Concomitant]
     Route: 048
  12. CYTOMEL [Concomitant]
     Route: 048
  13. SYNTHROID [Concomitant]
     Route: 048
  14. FOSAMAX [Concomitant]
     Route: 048
  15. VICODIN [Concomitant]
     Route: 048
  16. PRILOSEC [Concomitant]
     Route: 048
  17. IMODIUM A-D [Concomitant]
     Route: 048
  18. SODIUM CHLORIDE [Concomitant]
     Route: 042

REACTIONS (1)
  - Lacrimation increased [Unknown]
